FAERS Safety Report 20105258 (Version 1)
Quarter: 2021Q4

REPORT INFORMATION
  Report Type: Spontaneous
  Country: US (occurrence: US)
  Receive Date: 20211124
  Receipt Date: 20211124
  Transmission Date: 20220303
  Serious: Yes (Disabling, Other)
  Sender: FDA-Public Use
  Company Number: US-GLAXOSMITHKLINE-US2021AMR237499

PATIENT
  Age: 30 Year

DRUGS (1)
  1. PAXIL [Suspect]
     Active Substance: PAROXETINE HYDROCHLORIDE
     Indication: Product used for unknown indication
     Dosage: UNK
     Route: 065

REACTIONS (11)
  - Disability [Unknown]
  - Neuralgia [Unknown]
  - Burning sensation [Unknown]
  - Walking disability [Unknown]
  - Fatigue [Unknown]
  - Pain [Unknown]
  - Myalgia [Unknown]
  - Motor dysfunction [Unknown]
  - Electric shock sensation [Unknown]
  - Tremor [Unknown]
  - Withdrawal syndrome [Unknown]
